FAERS Safety Report 25776705 (Version 1)
Quarter: 2025Q3

REPORT INFORMATION
  Report Type: Spontaneous
  Country: US (occurrence: US)
  Receive Date: 20250909
  Receipt Date: 20250909
  Transmission Date: 20251021
  Serious: No
  Sender: DOMPE FARMACEUTICI
  Company Number: US-FARMAPROD-202503-0852

PATIENT
  Sex: Female

DRUGS (11)
  1. OXERVATE [Suspect]
     Active Substance: CENEGERMIN-BKBJ
     Indication: Neurotrophic keratopathy
     Route: 047
     Dates: start: 20250307
  2. OXERVATE [Suspect]
     Active Substance: CENEGERMIN-BKBJ
  3. IVIZIA [Concomitant]
     Active Substance: POVIDONE
  4. FISH OIL [Concomitant]
     Active Substance: FISH OIL
  5. CRANBERRY [Concomitant]
     Active Substance: CRANBERRY
  6. VITAMIN C [Concomitant]
     Active Substance: ASCORBIC ACID
  7. NIFEDIPINE [Concomitant]
     Active Substance: NIFEDIPINE
  8. MAGNESIUM OXIDE [Concomitant]
     Active Substance: MAGNESIUM OXIDE
  9. SUCRALFATE [Concomitant]
     Active Substance: SUCRALFATE
  10. ALENDRONATE SODIUM [Concomitant]
     Active Substance: ALENDRONATE SODIUM
  11. LATANOPROST [Concomitant]
     Active Substance: LATANOPROST

REACTIONS (2)
  - Eye pain [Not Recovered/Not Resolved]
  - Eye irritation [Not Recovered/Not Resolved]
